FAERS Safety Report 12685634 (Version 2)
Quarter: 2016Q3

REPORT INFORMATION
  Report Type: Report from Study
  Country: US (occurrence: US)
  Receive Date: 20160825
  Receipt Date: 20160901
  Transmission Date: 20161109
  Serious: No
  Sender: FDA-Public Use
  Company Number: PHEH2016US021305

PATIENT
  Age: 50 Year
  Sex: Female

DRUGS (1)
  1. GILENYA [Suspect]
     Active Substance: FINGOLIMOD HYDROCHLORIDE
     Indication: MULTIPLE SCLEROSIS
     Dosage: 0.5 MG, QD
     Route: 048
     Dates: start: 20160822

REACTIONS (5)
  - Fatigue [Unknown]
  - Head discomfort [Unknown]
  - Headache [Unknown]
  - Somnolence [Unknown]
  - Speech disorder [Unknown]

NARRATIVE: CASE EVENT DATE: 20160822
